FAERS Safety Report 12503585 (Version 8)
Quarter: 2017Q1

REPORT INFORMATION
  Report Type: Spontaneous
  Country: US (occurrence: US)
  Receive Date: 20160628
  Receipt Date: 20170315
  Transmission Date: 20170428
  Serious: Yes (Death, Congenital Anomaly, Other)
  Sender: FDA-Public Use
  Company Number: PHHY2015US130687

PATIENT
  Sex: Female

DRUGS (3)
  1. ZOFRAN [Suspect]
     Active Substance: ONDANSETRON HYDROCHLORIDE
     Indication: FOETAL EXPOSURE DURING PREGNANCY
     Dosage: MOTHER DOSE FREQUENCY: QD
     Route: 064
  2. METFORMIN [Concomitant]
     Active Substance: METFORMIN HYDROCHLORIDE
     Indication: FOETAL EXPOSURE DURING PREGNANCY
     Dosage: MOTHER DOSE: 500 MG
     Route: 064
  3. NUBAIN [Suspect]
     Active Substance: NALBUPHINE HYDROCHLORIDE
     Indication: FOETAL EXPOSURE DURING PREGNANCY
     Dosage: MOTHER DOSE: 10 MG
     Route: 064

REACTIONS (13)
  - Congenital tricuspid valve atresia [Unknown]
  - Ventricular hypoplasia [Unknown]
  - Right-to-left cardiac shunt [Unknown]
  - Foetal cardiac disorder [Unknown]
  - Bradycardia neonatal [Unknown]
  - Foetal exposure during pregnancy [Unknown]
  - Heart disease congenital [Fatal]
  - Post procedural complication [Unknown]
  - Mitral valve incompetence [Unknown]
  - Congenital pulmonary valve atresia [Unknown]
  - Atrial septal defect [Unknown]
  - Cardiomegaly [Unknown]
  - Premature baby [Unknown]
